FAERS Safety Report 5643207-8 (Version None)
Quarter: 2008Q1

REPORT INFORMATION
  Report Type: 
  Country: None (occurrence: None)
  Receive Date: 20080228
  Receipt Date: 20080219
  Transmission Date: 20080703
  Serious: No
  Sender: FDA-Public Use
  Company Number: US-ASTRAZENECA-2008UW03378

PATIENT
  Age: 88 Year
  Sex: Female

DRUGS (2)
  1. SEROQUEL [Suspect]
     Indication: ANXIETY
     Dosage: 50 MG AM AND 200 MG HS
     Route: 048
  2. DEPAKOTE [Suspect]

REACTIONS (2)
  - BLOOD COUNT ABNORMAL [None]
  - PLATELET COUNT DECREASED [None]
